FAERS Safety Report 22187861 (Version 1)
Quarter: 2023Q2

REPORT INFORMATION
  Report Type: Spontaneous
  Country: CA (occurrence: CA)
  Receive Date: 20230408
  Receipt Date: 20230408
  Transmission Date: 20230721
  Serious: Yes (Other)
  Sender: FDA-Public Use
  Company Number: CA-002147023-NVSC2023CA077259

PATIENT
  Age: 6 Year
  Sex: Male

DRUGS (2)
  1. TRAMETINIB [Suspect]
     Active Substance: TRAMETINIB
     Indication: Neurofibromatosis
     Dosage: UNK (24 MONTHS)
     Route: 065
     Dates: start: 202008, end: 202207
  2. TRAMETINIB [Suspect]
     Active Substance: TRAMETINIB
     Indication: Optic glioma

REACTIONS (6)
  - Optic glioma [Unknown]
  - Malignant neoplasm progression [Unknown]
  - Skin toxicity [Unknown]
  - Visual pathway disorder [Unknown]
  - Visual impairment [Unknown]
  - Product use in unapproved indication [Unknown]
